FAERS Safety Report 7092056-5 (Version None)
Quarter: 2010Q4

REPORT INFORMATION
  Report Type: 
  Country: None (occurrence: None)
  Receive Date: 20101109
  Receipt Date: 20081209
  Transmission Date: 20110411
  Serious: No
  Sender: FDA-Public Use
  Company Number: US-KINGPHARMUSA00001-K200801394

PATIENT
  Sex: Female

DRUGS (1)
  1. SKELAXIN [Suspect]
     Indication: BACK PAIN
     Dosage: UNK
     Route: 048

REACTIONS (1)
  - PRURITUS [None]
